FAERS Safety Report 4261863-6 (Version None)
Quarter: 2004Q1

REPORT INFORMATION
  Report Type: 
  Country: None (occurrence: None)
  Receive Date: 20040102
  Receipt Date: 20031105
  Transmission Date: 20041129
  Serious: Yes (Other)
  Sender: FDA-Public Use
  Company Number: PHBS2003NZ12546

PATIENT
  Sex: Female

DRUGS (7)
  1. EXELON [Suspect]
     Indication: DEMENTIA
     Dosage: 4.5 MG/D
     Route: 048
     Dates: start: 20030701
  2. EXELON [Suspect]
     Dosage: 3 MG/D
     Route: 048
  3. BENDROFLUAZIDE [Concomitant]
  4. CELIPROLOL [Concomitant]
  5. LIPITOR [Concomitant]
  6. AMITRIPTYLINE [Concomitant]
  7. SOLPRIN [Concomitant]

REACTIONS (7)
  - DIARRHOEA [None]
  - EROSIVE OESOPHAGITIS [None]
  - GASTRITIS EROSIVE [None]
  - GASTROOESOPHAGEAL REFLUX DISEASE [None]
  - HAEMATEMESIS [None]
  - REFLUX GASTRITIS [None]
  - VOMITING [None]
